FAERS Safety Report 16340092 (Version 1)
Quarter: 2019Q2

REPORT INFORMATION
  Report Type: Spontaneous
  Country: US (occurrence: US)
  Receive Date: 20190522
  Receipt Date: 20190522
  Transmission Date: 20190711
  Serious: No
  Sender: FDA-Public Use
  Company Number: US-AMAG PHARMACEUTICALS, INC.-AMAG201901005

PATIENT
  Age: 76 Year
  Sex: Female
  Weight: 65.31 kg

DRUGS (8)
  1. INTRAROSA [Suspect]
     Active Substance: PRASTERONE
     Indication: PAIN
  2. INTRAROSA [Suspect]
     Active Substance: PRASTERONE
     Indication: TISSUE RUPTURE
  3. SYNTHROID [Concomitant]
     Active Substance: LEVOTHYROXINE SODIUM
     Indication: PRODUCT USED FOR UNKNOWN INDICATION
     Route: 065
  4. VAGIFEM [Concomitant]
     Active Substance: ESTRADIOL
     Indication: PRODUCT USED FOR UNKNOWN INDICATION
     Dosage: X 2 NIGHTS/WEEK
     Route: 067
  5. CLIMARA [Concomitant]
     Active Substance: ESTRADIOL
     Indication: PRODUCT USED FOR UNKNOWN INDICATION
     Dosage: 0.375 UNK, UNK
     Route: 062
  6. INTRAROSA [Suspect]
     Active Substance: PRASTERONE
     Indication: ATROPHIC VULVOVAGINITIS
     Dosage: X5 NIGHTS/WEEK
     Route: 067
     Dates: start: 201811
  7. INTRAROSA [Suspect]
     Active Substance: PRASTERONE
     Indication: URETHRAL DISORDER
  8. PREDNISONE. [Concomitant]
     Active Substance: PREDNISONE
     Indication: PRODUCT USED FOR UNKNOWN INDICATION
     Dosage: 6 MG, UNK
     Route: 065

REACTIONS (2)
  - Acne [Not Recovered/Not Resolved]
  - Off label use [Not Recovered/Not Resolved]

NARRATIVE: CASE EVENT DATE: 201811
